FAERS Safety Report 8483871-1 (Version None)
Quarter: 2012Q2

REPORT INFORMATION
  Report Type: 
  Country: None (occurrence: None)
  Receive Date: 20120625
  Receipt Date: 20120614
  Transmission Date: 20120825
  Serious: Yes (Hospitalization)
  Sender: FDA-Public Use
  Company Number: 2011SP054004

PATIENT
  Age: 31 Year
  Sex: Female
  Weight: 58 kg

DRUGS (4)
  1. ELANI [Concomitant]
  2. FOLIC ACID [Concomitant]
  3. DESOGESTREL AND ETHINYL ESTRADIOL [Suspect]
     Indication: OVARIAN CYST
     Dosage: QD, PO
     Route: 048
     Dates: start: 20110819, end: 20111110
  4. DESOGESTREL AND ETHINYL ESTRADIOL [Suspect]
     Indication: MENSTRUAL CYCLE MANAGEMENT
     Dosage: QD, PO
     Route: 048
     Dates: start: 20110819, end: 20111110

REACTIONS (5)
  - HYPOAESTHESIA [None]
  - ALOPECIA [None]
  - OVARIAN CYSTECTOMY [None]
  - HEADACHE [None]
  - DRUG INEFFECTIVE FOR UNAPPROVED INDICATION [None]
